FAERS Safety Report 25062324 (Version 1)
Quarter: 2025Q1

REPORT INFORMATION
  Report Type: Spontaneous
  Country: US (occurrence: US)
  Receive Date: 20250311
  Receipt Date: 20250311
  Transmission Date: 20250408
  Serious: Yes (Other)
  Sender: PROCTER AND GAMBLE
  Company Number: US-PROCTER_AND_GAMBLE-PH25001594

PATIENT
  Age: 48 Year
  Sex: Female

DRUGS (2)
  1. PEPTO-BISMOL (BISMUTH SUBSALICYLATE) [Suspect]
     Active Substance: BISMUTH SUBSALICYLATE
     Indication: Dyspepsia
     Dosage: 1 DOSAGE FORM (ONE DOSE), 1 ONLY, STOPPED IMMEDIATELY
     Route: 048
     Dates: start: 20250224, end: 20250224
  2. SODIUM SALICYLATE [Suspect]
     Active Substance: SODIUM SALICYLATE
     Route: 048
     Dates: start: 20250224, end: 20250224

REACTIONS (7)
  - Urticaria [Recovering/Resolving]
  - Rash pruritic [Recovering/Resolving]
  - Lip swelling [Unknown]
  - Dyspnoea [Recovering/Resolving]
  - Pharyngeal swelling [Recovering/Resolving]
  - Allergic reaction to excipient [Recovering/Resolving]
  - Heart rate increased [Recovering/Resolving]

NARRATIVE: CASE EVENT DATE: 20250224
